FAERS Safety Report 6053500-5 (Version None)
Quarter: 2009Q1

REPORT INFORMATION
  Report Type: 
  Country: None (occurrence: None)
  Receive Date: 20090127
  Receipt Date: 20080616
  Transmission Date: 20090719
  Serious: Yes (Other)
  Sender: FDA-Public Use
  Company Number: US-TEVA-172933USA

PATIENT
  Sex: Male

DRUGS (2)
  1. COPAXONE [Suspect]
     Indication: MULTIPLE SCLEROSIS
     Route: 058
     Dates: start: 20020101, end: 20080501
  2. AZATHIOPRINE [Concomitant]
     Indication: HEPATITIS
     Dates: end: 20080601

REACTIONS (2)
  - NEPHRITIS [None]
  - NEPHROTIC SYNDROME [None]
